FAERS Safety Report 5196093-7 (Version None)
Quarter: 2006Q4

REPORT INFORMATION
  Report Type: 
  Country: None (occurrence: None)
  Receive Date: 20061226
  Receipt Date: 20061215
  Transmission Date: 20070319
  Serious: Yes (Other)
  Sender: FDA-Public Use
  Company Number: GBWYE860715DEC06

PATIENT
  Sex: Female

DRUGS (4)
  1. EFFEXOR [Suspect]
     Dosage: 75 MG TRANSPLACENTAL
     Route: 064
     Dates: start: 20050101, end: 20060401
  2. FLUOXETINE [Suspect]
     Indication: DEPRESSION
     Dosage: 20MG TRANSPLACENTAL
     Route: 064
     Dates: start: 20060401
  3. FOLIC ACID [Suspect]
     Indication: PREGNANCY
     Dosage: TRANSPLACENTAL
     Route: 064
  4. IRON (IRON, , 0) [Suspect]
     Dosage: TRANSPLACENTAL
     Route: 064
     Dates: end: 20061101

REACTIONS (4)
  - CLEFT PALATE [None]
  - CONGENITAL ANOMALY [None]
  - DRUG EXPOSURE DURING PREGNANCY [None]
  - PREMATURE BABY [None]
